FAERS Safety Report 4823348-5 (Version None)
Quarter: 2005Q4

REPORT INFORMATION
  Report Type: 
  Country: None (occurrence: None)
  Receive Date: 20051107
  Receipt Date: 20051027
  Transmission Date: 20060501
  Serious: Yes (Death)
  Sender: FDA-Public Use
  Company Number: CHNY2005GB01985

PATIENT
  Age: 89 Year
  Sex: Female

DRUGS (9)
  1. LACTULOSE (NCH)(LACTULOSE) UNKNOWN [Suspect]
     Dosage: 300 MG, BID
  2. SALBUTAMOL (NGX) (SALBUTAMOL) [Suspect]
     Dosage: 100 MCG/PUFF
  3. ACETAMINOPHEN W/ CODEINE [Suspect]
     Dosage: 2 DF, QID
  4. SPIRIVA [Suspect]
     Dosage: 18 UG, QID
  5. OXYGEN (OXYGEN) [Suspect]
     Dosage: 1380 LITRES, 2 CYLINDERS
  6. CO-AMILOFRUSE (AMILORIDE HYDROCHLORIDE, FUROSEMIDE) [Suspect]
     Dosage: 1 DF, QD
  7. CALCICHEW D3(CALCIUM CARBONATE, COLECALCIFEROL) [Suspect]
     Dosage: QID
  8. SERETIDE (FLUTICASONE PROPIONATE, SALMETEROL XINAFOATE) [Suspect]
     Dosage: 2 DF, BID
  9. ACTIVA () [Suspect]
     Dosage: BELOW KNEE STOCKINGS

REACTIONS (2)
  - EMPHYSEMA [None]
  - OVERDOSE [None]
